FAERS Safety Report 7551713-4 (Version None)
Quarter: 2011Q2

REPORT INFORMATION
  Report Type: 
  Country: None (occurrence: None)
  Receive Date: 20110616
  Receipt Date: 20110601
  Transmission Date: 20111010
  Serious: Yes (Death)
  Sender: FDA-Public Use
  Company Number: A0789936A

PATIENT
  Age: 41 Year
  Sex: Male
  Weight: 92.7 kg

DRUGS (3)
  1. AVANDIA [Suspect]
     Dosage: 4MG TWICE PER DAY
     Route: 048
     Dates: start: 20000901, end: 20041122
  2. INSULIN [Concomitant]
  3. ACCUPRIL [Concomitant]

REACTIONS (1)
  - MYOCARDIAL INFARCTION [None]
